FAERS Safety Report 11317269 (Version 1)
Quarter: 2015Q3

REPORT INFORMATION
  Report Type: Spontaneous
  Country: US (occurrence: None)
  Receive Date: 20150727
  Receipt Date: 20150727
  Transmission Date: 20151125
  Serious: Yes (Hospitalization, Other)
  Sender: FDA-Public Use
  Company Number: None

PATIENT
  Age: 86 Year
  Sex: Female
  Weight: 48.54 kg

DRUGS (2)
  1. REMERON [Suspect]
     Active Substance: MIRTAZAPINE
     Indication: APPETITE DISORDER
     Dosage: FEEDING TUBE
  2. REMERON [Suspect]
     Active Substance: MIRTAZAPINE
     Indication: FEEDING TUBE USER
     Dosage: FEEDING TUBE

REACTIONS (12)
  - Screaming [None]
  - Dysuria [None]
  - Movement disorder [None]
  - Candida infection [None]
  - Wheezing [None]
  - Chills [None]
  - Craniocerebral injury [None]
  - Dry mouth [None]
  - Hyperhidrosis [None]
  - Hallucination [None]
  - Fall [None]
  - Tremor [None]

NARRATIVE: CASE EVENT DATE: 20150725
